FAERS Safety Report 7430795-4 (Version None)
Quarter: 2011Q2

REPORT INFORMATION
  Report Type: 
  Country: None (occurrence: None)
  Receive Date: 20110419
  Receipt Date: 20110419
  Transmission Date: 20111010
  Serious: No
  Sender: FDA-Public Use
  Company Number: None

PATIENT
  Age: 86 Year
  Sex: Male

DRUGS (1)
  1. LEVAQUIN [Suspect]
     Dosage: 500 MG ONCE IV PIGGYBACK
     Route: 042
     Dates: start: 20110416, end: 20110416

REACTIONS (2)
  - INFUSION SITE ERYTHEMA [None]
  - HYPERSENSITIVITY [None]
